FAERS Safety Report 7555714-1 (Version None)
Quarter: 2011Q2

REPORT INFORMATION
  Report Type: 
  Country: None (occurrence: None)
  Receive Date: 20110617
  Receipt Date: 20110614
  Transmission Date: 20111010
  Serious: Yes (Other)
  Sender: FDA-Public Use
  Company Number: GB-MERCK-1104GBR00129

PATIENT
  Age: 79 Year
  Sex: Male
  Weight: 63 kg

DRUGS (14)
  1. ASPIRIN [Concomitant]
     Route: 065
  2. ATENOLOL [Concomitant]
     Route: 065
  3. RAMIPRIL [Concomitant]
     Route: 065
  4. HYPROMELLOSE [Concomitant]
     Route: 065
  5. SIMVASTATIN [Concomitant]
     Route: 048
  6. NITROGLYCERIN [Concomitant]
     Route: 065
  7. JANUVIA [Suspect]
     Indication: DIABETES MELLITUS
     Route: 048
     Dates: start: 20110307, end: 20110310
  8. ACETAMINOPHEN AND PROPOXYPHENE HYDROCHLORIDE [Concomitant]
     Indication: PAIN
     Route: 065
  9. GLICLAZIDE [Concomitant]
     Route: 065
  10. ISOSORBIDE MONONITRATE [Concomitant]
     Route: 065
  11. PROCHLORPERAZINE MALEATE [Concomitant]
     Indication: VERTIGO
     Route: 065
  12. ALFUZOSIN HYDROCHLORIDE [Concomitant]
     Route: 065
  13. AMLODIPINE [Concomitant]
     Route: 065
  14. QUININE SULFATE [Concomitant]
     Route: 065

REACTIONS (1)
  - LOWER RESPIRATORY TRACT INFECTION [None]
